FAERS Safety Report 25473976 (Version 1)
Quarter: 2025Q2

REPORT INFORMATION
  Report Type: Spontaneous
  Country: US (occurrence: None)
  Receive Date: 20250618
  Receipt Date: 20250618
  Transmission Date: 20250717
  Serious: Yes (Hospitalization, Disabling, Other)
  Sender: FDA-CTU
  Company Number: None

PATIENT
  Age: 57 Year
  Sex: Female
  Weight: 68.95 kg

DRUGS (9)
  1. TZIELD [Suspect]
     Active Substance: TEPLIZUMAB-MZWV
     Indication: Type 2 diabetes mellitus
     Route: 042
     Dates: start: 20250519, end: 20250522
  2. OZEMPIC [Concomitant]
     Active Substance: SEMAGLUTIDE
  3. ATENOLOL [Concomitant]
     Active Substance: ATENOLOL
  4. SYNTHROID [Concomitant]
     Active Substance: LEVOTHYROXINE SODIUM
  5. ALLEGRA [Concomitant]
     Active Substance: FEXOFENADINE HYDROCHLORIDE
  6. ATORVASTATIN [Concomitant]
     Active Substance: ATORVASTATIN
  7. METFORMIN [Concomitant]
     Active Substance: METFORMIN HYDROCHLORIDE
  8. REMERON [Concomitant]
     Active Substance: MIRTAZAPINE
  9. REPAGLINIDE [Concomitant]
     Active Substance: REPAGLINIDE

REACTIONS (8)
  - Memory impairment [None]
  - Confusional state [None]
  - Nausea [None]
  - Vomiting [None]
  - Amnesia [None]
  - Cognitive disorder [None]
  - Skin burning sensation [None]
  - Pruritus [None]

NARRATIVE: CASE EVENT DATE: 20250522
